FAERS Safety Report 16683665 (Version 1)
Quarter: 2019Q3

REPORT INFORMATION
  Report Type: Spontaneous
  Country: US (occurrence: US)
  Receive Date: 20190808
  Receipt Date: 20190808
  Transmission Date: 20191004
  Serious: No
  Sender: FDA-Public Use
  Company Number: US-ALLERGAN-1847839US

PATIENT
  Age: 19 Year
  Sex: Male

DRUGS (3)
  1. ANDRODERM [Suspect]
     Active Substance: TESTOSTERONE
     Indication: ANDROGEN DEFICIENCY
     Dosage: 4 MG DOSE AND APPLIES ONE NEW PATCH DAILY
     Route: 061
  2. ANDRODERM [Suspect]
     Active Substance: TESTOSTERONE
     Indication: OLFACTO GENITAL DYSPLASIA
  3. ALBUTEROL. [Concomitant]
     Active Substance: ALBUTEROL
     Indication: ASTHMA
     Dosage: UNK
     Route: 055

REACTIONS (7)
  - Off label use [Unknown]
  - Application site irritation [Recovered/Resolved]
  - Wrong technique in product usage process [Unknown]
  - Application site burn [Recovered/Resolved]
  - Application site inflammation [Recovered/Resolved]
  - Application site reaction [Unknown]
  - Product dosage form issue [Unknown]
